FAERS Safety Report 5626435-7 (Version None)
Quarter: 2008Q1

REPORT INFORMATION
  Report Type: 
  Country: None (occurrence: None)
  Receive Date: 20080214
  Receipt Date: 20080208
  Transmission Date: 20080703
  Serious: Yes (Other)
  Sender: FDA-Public Use
  Company Number: IE-JNJFOC-20080200167

PATIENT
  Age: 82 Year
  Sex: Female

DRUGS (2)
  1. REMINYL [Suspect]
     Indication: DEMENTIA
     Route: 048
  2. LIPITOR [Concomitant]

REACTIONS (1)
  - HEPATOCELLULAR INJURY [None]
